FAERS Safety Report 15844304 (Version 2)
Quarter: 2019Q1

REPORT INFORMATION
  Report Type: Spontaneous
  Country: CH (occurrence: CH)
  Receive Date: 20190118
  Receipt Date: 20190204
  Transmission Date: 20190417
  Serious: Yes (Hospitalization)
  Sender: FDA-Public Use
  Company Number: CH-AMREGENT-20190051

PATIENT
  Age: 86 Year
  Sex: Female
  Weight: 90.2 kg

DRUGS (9)
  1. TORASEMID SANDOZ ECO [Concomitant]
     Active Substance: TORSEMIDE
     Dosage: 10 MG ( 10 MG 1 IN 1 D)
     Route: 048
  2. DE-URSIL [Concomitant]
     Dosage: 600MG(300 MG, 2 IN 1 D)
     Route: 048
  3. ALDACTONE [Concomitant]
     Active Substance: SPIRONOLACTONE
     Dosage: 100 MG(100 MG, 1 IN 1 D)
     Route: 048
  4. ZYLORIC [Suspect]
     Active Substance: ALLOPURINOL
     Dosage: 100MG(100 MG, 1 IN 1 D )
     Route: 048
     Dates: end: 20181001
  5. BELOC ZOK [Concomitant]
     Active Substance: METOPROLOL SUCCINATE
     Dosage: 100 MG (50MG, 1 IN 12 HR)
     Route: 048
  6. FERINJECT [Suspect]
     Active Substance: FERRIC CARBOXYMALTOSE
     Dosage: UNKNOWN
     Route: 041
     Dates: start: 20180921, end: 20180921
  7. PANTOZOL [Concomitant]
     Active Substance: PANTOPRAZOLE SODIUM
     Dosage: 20 MG,(20 MG 1 IN 1 D)
     Route: 048
  8. DIAMICRON [Concomitant]
     Active Substance: GLICLAZIDE
     Dosage: 60 MG (60 MG, 1 IN 1 D)
     Route: 048
  9. TIROSINT [Concomitant]
     Active Substance: LEVOTHYROXINE SODIUM
     Dosage: 13 MCG,MON,TUE,WED,THU,FRI
     Route: 048

REACTIONS (1)
  - Subcorneal pustular dermatosis [Recovering/Resolving]

NARRATIVE: CASE EVENT DATE: 20181001
